FAERS Safety Report 20938224 (Version 1)
Quarter: 2022Q2

REPORT INFORMATION
  Report Type: Spontaneous
  Country: US (occurrence: None)
  Receive Date: 20220608
  Receipt Date: 20220608
  Transmission Date: 20220721
  Serious: Yes (Hospitalization)
  Sender: FDA-Public Use
  Company Number: None

PATIENT
  Age: 61 Year
  Sex: Male

DRUGS (1)
  1. BEBTELOVIMAB [Suspect]
     Active Substance: BEBTELOVIMAB
     Indication: COVID-19 pneumonia
     Dosage: OTHER FREQUENCY : ONCE;?
     Route: 040
     Dates: start: 20220606, end: 20220607

REACTIONS (10)
  - Infusion related reaction [None]
  - Hypertension [None]
  - Syncope [None]
  - Agonal respiration [None]
  - Cardio-respiratory arrest [None]
  - Pulse abnormal [None]
  - Cough [None]
  - Thirst [None]
  - Erythema [None]
  - Eye movement disorder [None]

NARRATIVE: CASE EVENT DATE: 20220606
